FAERS Safety Report 6091786-1 (Version None)
Quarter: 2009Q1

REPORT INFORMATION
  Report Type: 
  Country: None (occurrence: None)
  Receive Date: 20090225
  Receipt Date: 20080618
  Transmission Date: 20090719
  Serious: No
  Sender: FDA-Public Use
  Company Number: A0733696A

PATIENT
  Age: 52 Year
  Sex: Female

DRUGS (5)
  1. VALTREX [Suspect]
     Indication: DRUG USE FOR UNKNOWN INDICATION
     Dosage: 1G TWICE PER DAY
     Route: 048
     Dates: start: 20080614
  2. AUGMENTIN '125' [Concomitant]
  3. ZOLOFT [Concomitant]
  4. PREVACID [Concomitant]
  5. LORAZEPAM [Concomitant]

REACTIONS (1)
  - FAECES DISCOLOURED [None]
